FAERS Safety Report 12144088 (Version 1)
Quarter: 2016Q1

REPORT INFORMATION
  Report Type: Not Available
  Country: DE (occurrence: DE)
  Receive Date: 20160304
  Receipt Date: 20160304
  Transmission Date: 20160526
  Serious: Yes (Hospitalization)
  Sender: FDA-Public Use
  Company Number: DE-BEH-2016059533

PATIENT
  Age: 12 Year
  Sex: Male

DRUGS (8)
  1. COTRIM [Concomitant]
     Active Substance: SULFAMETHOXAZOLE\TRIMETHOPRIM
  2. ALDACTONE [Concomitant]
     Active Substance: SPIRONOLACTONE
  3. ANTRA MUPS [Concomitant]
     Active Substance: OMEPRAZOLE MAGNESIUM
  4. TRACLEER [Concomitant]
     Active Substance: BOSENTAN
  5. PRIVIGEN [Suspect]
     Active Substance: HUMAN IMMUNOGLOBULIN G
     Indication: PROTEIN DEFICIENCY
     Route: 042
     Dates: start: 20160112
  6. SILDENAFIL. [Concomitant]
     Active Substance: SILDENAFIL
     Dosage: 2X25 MG
     Route: 048
  7. LANITOP [Concomitant]
     Active Substance: METILDIGOXIN
     Route: 048
  8. ESIDRIX [Concomitant]
     Active Substance: HYDROCHLOROTHIAZIDE

REACTIONS (5)
  - Agitation [Recovered/Resolved]
  - Body temperature increased [Recovered/Resolved]
  - Chills [Recovered/Resolved]
  - Vomiting [Recovered/Resolved]
  - Anxiety [Recovered/Resolved]

NARRATIVE: CASE EVENT DATE: 20160112
